FAERS Safety Report 22109273 (Version 1)
Quarter: 2023Q1

REPORT INFORMATION
  Report Type: Other
  Country: None (occurrence: JP)
  Receive Date: 20230317
  Receipt Date: 20230317
  Transmission Date: 20230418
  Serious: Yes (Other)
  Sender: FDA-Public Use
  Company Number: JP-B.Braun Medical Inc.-2139192

PATIENT
  Age: 64 Year
  Sex: Male

DRUGS (16)
  1. ACETAMINOPHEN [Suspect]
     Active Substance: ACETAMINOPHEN
  2. RASBURICASE [Suspect]
     Active Substance: RASBURICASE
  3. ESOMEPRAZOLE. [Suspect]
     Active Substance: ESOMEPRAZOLE MAGNESIUM
  4. FEBUXOSTAT [Concomitant]
     Active Substance: FEBUXOSTAT
  5. Sodium hydration [Concomitant]
  6. CARBOPLATIN [Concomitant]
     Active Substance: CARBOPLATIN
  7. ETOPOSIDE [Concomitant]
     Active Substance: ETOPOSIDE
  8. ATEZOLIZUMAB [Concomitant]
     Active Substance: ATEZOLIZUMAB
  9. REMDESIVIR [Concomitant]
     Active Substance: REMDESIVIR
  10. DEXAMETHASONE [Concomitant]
     Active Substance: DEXAMETHASONE
  11. CALCIUM POLYSTYRENE SULFONATE [Concomitant]
     Active Substance: CALCIUM POLYSTYRENE SULFONATE
  12. CALCIUM CARBONATE [Concomitant]
     Active Substance: CALCIUM CARBONATE
  13. ALFACALCIDOL [Concomitant]
     Active Substance: ALFACALCIDOL
  14. DENOSUMAB [Concomitant]
     Active Substance: DENOSUMAB
  15. NAFAMOSTAT MESYLATE [Concomitant]
     Active Substance: NAFAMOSTAT MESYLATE
  16. HEPARIN [Concomitant]
     Active Substance: HEPARIN SODIUM

REACTIONS (1)
  - Neutropenia [Recovered/Resolved]
